FAERS Safety Report 7383946-4 (Version None)
Quarter: 2011Q1

REPORT INFORMATION
  Report Type: 
  Country: None (occurrence: None)
  Receive Date: 20110330
  Receipt Date: 20110323
  Transmission Date: 20110831
  Serious: Yes (Other)
  Sender: FDA-Public Use
  Company Number: IE-PFIZER INC-2011064255

PATIENT
  Age: 63 Year
  Sex: Male
  Weight: 100 kg

DRUGS (1)
  1. ZITHROMAX [Suspect]
     Indication: BRONCHIECTASIS
     Dosage: 250 MG, 3X WEEKLY
     Route: 048
     Dates: start: 20100701, end: 20100901

REACTIONS (1)
  - TENDONITIS [None]
